FAERS Safety Report 4515385-5 (Version None)
Quarter: 2004Q4

REPORT INFORMATION
  Report Type: 
  Country: None (occurrence: None)
  Receive Date: 20041126
  Receipt Date: 20041119
  Transmission Date: 20050328
  Serious: Yes (Life-Threatening)
  Sender: FDA-Public Use
  Company Number: 2004UW23852

PATIENT
  Sex: Male

DRUGS (2)
  1. SEROQUEL [Suspect]
     Dosage: 600 MG QD PO
     Route: 048
  2. ZYPREXA [Concomitant]

REACTIONS (2)
  - CHOKING [None]
  - DRY MOUTH [None]
